FAERS Safety Report 8773700 (Version 1)
Quarter: 2012Q4

REPORT INFORMATION
  Report Type: Report from Study
  Country: CA (occurrence: CA)
  Receive Date: 20120907
  Receipt Date: 20120907
  Transmission Date: 20130627
  Serious: Yes (Death, Life-Threatening, Other)
  Sender: FDA-Public Use
  Company Number: CA-ROCHE-1115908

PATIENT
  Age: 60 Year

DRUGS (1)
  1. AVASTIN [Suspect]
     Indication: COLORECTAL CANCER
     Route: 065
     Dates: start: 20120516, end: 201206

REACTIONS (3)
  - Febrile neutropenia [Unknown]
  - Unevaluable event [Unknown]
  - Death [Fatal]
